FAERS Safety Report 5003688-X (Version None)
Quarter: 2006Q2

REPORT INFORMATION
  Report Type: 
  Country: None (occurrence: None)
  Receive Date: 20060516
  Receipt Date: 20051114
  Transmission Date: 20061013
  Serious: Yes (Hospitalization, Disabling)
  Sender: FDA-Public Use
  Company Number: US-MERCK-0511USA02504

PATIENT
  Age: 51 Year
  Sex: Male
  Weight: 64 kg

DRUGS (2)
  1. VIOXX [Suspect]
     Indication: ARTHROPATHY
     Route: 048
     Dates: start: 20000101
  2. CIMETIDINE [Concomitant]
     Route: 065

REACTIONS (11)
  - ANXIETY [None]
  - CHEST PAIN [None]
  - COMPRESSION FRACTURE [None]
  - CORONARY ARTERY SURGERY [None]
  - DIZZINESS [None]
  - FATIGUE [None]
  - HYPOGLYCAEMIA [None]
  - INJURY [None]
  - LYMPHADENOPATHY [None]
  - MYOCARDIAL INFARCTION [None]
  - PAIN [None]
